FAERS Safety Report 9350875 (Version 2)
Quarter: 2013Q3

REPORT INFORMATION
  Report Type: Spontaneous
  Country: JP (occurrence: JP)
  Receive Date: 20130617
  Receipt Date: 20130706
  Transmission Date: 20140515
  Serious: Yes (Hospitalization)
  Sender: FDA-Public Use
  Company Number: JP-B.I. PHARMACEUTICALS,INC./RIDGEFIELD-2013-BI-16996GD

PATIENT
  Age: 33 Year
  Sex: Male
  Weight: 43.6 kg

DRUGS (3)
  1. RANITIDINE [Suspect]
     Indication: CROHN^S DISEASE
     Dates: start: 2001, end: 2011
  2. MESALAZINE [Suspect]
     Indication: CROHN^S DISEASE
     Dates: start: 2001, end: 2011
  3. INFLIXIMAB [Concomitant]
     Indication: CROHN^S DISEASE
     Dates: start: 2007

REACTIONS (4)
  - Tubulointerstitial nephritis [Unknown]
  - Anaemia [Unknown]
  - Hypokalaemia [Unknown]
  - Hypophosphataemia [Unknown]
